FAERS Safety Report 8280027-2 (Version None)
Quarter: 2012Q2

REPORT INFORMATION
  Report Type: 
  Country: None (occurrence: None)
  Receive Date: 20120412
  Receipt Date: 20110815
  Transmission Date: 20120825
  Serious: No
  Sender: FDA-Public Use
  Company Number: US-ASTRAZENECA-2011SE41978

PATIENT
  Age: 63 Year
  Sex: Female
  Weight: 67.6 kg

DRUGS (19)
  1. ATACAND [Suspect]
     Route: 048
     Dates: start: 20110104
  2. VENTOLIN [Concomitant]
  3. DIOVAN HCT [Concomitant]
  4. ATACAND [Suspect]
     Route: 048
  5. LISINOPRIL [Concomitant]
  6. ATACAND HCT [Concomitant]
  7. PAXIL [Concomitant]
  8. PRILOSEC [Concomitant]
  9. XANAX [Concomitant]
  10. ZEGERID [Concomitant]
  11. LISINOPRIL AND HYDROCHLOROTHIAZIDE [Concomitant]
  12. ZITHROMAX [Concomitant]
  13. NEXIUM [Suspect]
     Route: 048
  14. ATACAND [Suspect]
     Route: 048
  15. PROTONIX [Concomitant]
  16. PREDNISONE TAB [Concomitant]
  17. LORATADINE [Concomitant]
  18. CLONIDINE HYDROCHLORIDE [Concomitant]
  19. RISPERDAL [Concomitant]

REACTIONS (11)
  - FALL [None]
  - DIVERTICULUM [None]
  - HAEMORRHOIDS [None]
  - AUTONOMIC NEUROPATHY [None]
  - DRUG INEFFECTIVE [None]
  - WHEEZING [None]
  - DRUG DOSE OMISSION [None]
  - BLOOD PRESSURE INCREASED [None]
  - CHEST PAIN [None]
  - VOMITING [None]
  - MALAISE [None]
